FAERS Safety Report 8604358-9 (Version None)
Quarter: 2012Q3

REPORT INFORMATION
  Report Type: 
  Country: None (occurrence: None)
  Receive Date: 20120820
  Receipt Date: 20120809
  Transmission Date: 20120928
  Serious: Yes (Hospitalization, Disabling, Other)
  Sender: FDA-Public Use
  Company Number: NO-JNJFOC-20120600572

PATIENT
  Sex: Male

DRUGS (12)
  1. ALL OTHER MEDICATIONS [Concomitant]
     Route: 065
  2. PENTASA [Concomitant]
     Route: 065
     Dates: start: 20110601
  3. METOPROLOL SUCCINATE [Concomitant]
     Route: 065
     Dates: start: 20110601
  4. FUROSEMIDE [Concomitant]
     Route: 065
     Dates: start: 20110601
  5. REMICADE [Suspect]
     Route: 042
     Dates: start: 20080101
  6. LOPERAMIDE [Concomitant]
     Route: 065
  7. ASPIRIN [Concomitant]
     Route: 065
     Dates: start: 20110601
  8. REMICADE [Suspect]
     Indication: ANKYLOSING SPONDYLITIS
     Route: 042
     Dates: start: 20110608, end: 20110601
  9. ZOCOR [Suspect]
     Indication: PRODUCT USED FOR UNKNOWN INDICATION
     Route: 048
     Dates: start: 20110601
  10. ATACAND [Concomitant]
     Route: 065
     Dates: start: 20110601
  11. ACETAMINOPHEN [Concomitant]
     Route: 065
  12. PARALGIN FORTE [Concomitant]
     Route: 065

REACTIONS (9)
  - AORTIC VALVE INCOMPETENCE [None]
  - CARDIAC FAILURE [None]
  - PULMONARY CONGESTION [None]
  - SUBILEUS [None]
  - DILATATION VENTRICULAR [None]
  - ATRIAL FIBRILLATION [None]
  - INTESTINAL STENOSIS [None]
  - CORONARY ARTERY STENOSIS [None]
  - ANASTOMOTIC STENOSIS [None]
